FAERS Safety Report 10623138 (Version 2)
Quarter: 2014Q4

REPORT INFORMATION
  Report Type: Report from Study
  Country: US (occurrence: US)
  Receive Date: 20141203
  Receipt Date: 20141203
  Transmission Date: 20150529
  Serious: Yes (Hospitalization)
  Sender: FDA-Public Use
  Company Number: US-UCBSA-058342

PATIENT
  Age: 22 Year
  Sex: Female
  Weight: 51.5 kg

DRUGS (5)
  1. CERTOLIZUMAB PEGOL CD [Suspect]
     Active Substance: CERTOLIZUMAB PEGOL
     Indication: CROHN^S DISEASE
     Dates: start: 20110719
  2. FLAGYL [Concomitant]
     Active Substance: METRONIDAZOLE\METRONIDAZOLE HYDROCHLORIDE
     Indication: CROHN^S DISEASE
     Dates: start: 20100721
  3. BUDESONIDE. [Concomitant]
     Active Substance: BUDESONIDE
     Indication: CROHN^S DISEASE
     Dates: start: 20070226
  4. AZATHIOPRINE. [Concomitant]
     Active Substance: AZATHIOPRINE
     Indication: CROHN^S DISEASE
  5. ADALIMUMAB [Concomitant]
     Active Substance: ADALIMUMAB
     Indication: CROHN^S DISEASE
     Dates: start: 20070125

REACTIONS (1)
  - Infected fistula [Recovered/Resolved]

NARRATIVE: CASE EVENT DATE: 20120520
